FAERS Safety Report 17848212 (Version 4)
Quarter: 2020Q4

REPORT INFORMATION
  Report Type: Spontaneous
  Country: AU (occurrence: AU)
  Receive Date: 20200601
  Receipt Date: 20201220
  Transmission Date: 20210113
  Serious: Yes (Hospitalization)
  Sender: FDA-Public Use
  Company Number: AU-BRISTOL-MYERS SQUIBB COMPANY-BMS-2020-041677

PATIENT
  Age: 74 Year
  Sex: Male
  Weight: 115 kg

DRUGS (21)
  1. SOMAC [Concomitant]
     Active Substance: PANTOPRAZOLE SODIUM
     Indication: GASTROOESOPHAGEAL REFLUX DISEASE
     Dosage: 1 DOSAGE FORM DAILY
     Route: 048
     Dates: start: 20040715
  2. PANADOL [Concomitant]
     Active Substance: ACETAMINOPHEN
     Indication: OSTEOARTHRITIS
     Dosage: 2 DOSAGE FORMS, TID AS NECESSARY
     Route: 048
     Dates: start: 20150514
  3. METOPROLOL TARTRATE. [Concomitant]
     Active Substance: METOPROLOL TARTRATE
     Indication: HYPERTENSION
     Dosage: 1 DOSAGE FORM, BID
     Route: 048
     Dates: start: 20190507
  4. ENDONE [Concomitant]
     Active Substance: OXYCODONE HYDROCHLORIDE
     Indication: ARTHRALGIA
     Dosage: 1-2 DOSAGE FORMS DAILY
     Route: 048
     Dates: start: 20200312
  5. FLUAD NOS [Concomitant]
     Active Substance: INFLUENZA VIRUS VACCINE
     Indication: PRODUCT USED FOR UNKNOWN INDICATION
     Dosage: UNK
     Route: 065
     Dates: start: 20190507
  6. TEARS NATURALE [DEXTRAN;HYPROMELLOSE] [Concomitant]
     Indication: PRODUCT USED FOR UNKNOWN INDICATION
     Dosage: 2 DROPS EVERY 2 HOURS AS NECESSARY
     Route: 065
  7. PRAVACHOL [Concomitant]
     Active Substance: PRAVASTATIN SODIUM
     Indication: CORONARY ARTERY DISEASE
     Dosage: 1 DOSAGE FORM DAILY
     Route: 048
     Dates: start: 20190909
  8. MAGNESIUM ASPARTATE [Concomitant]
     Active Substance: MAGNESIUM ASPARTATE
     Indication: HYPOMAGNESAEMIA
     Dosage: 4 TO 5 DOSAGE FORMS A DAY SPLIT IN THE MORNING AND NIGHT
     Route: 048
     Dates: start: 20200328
  9. COLOXYL WITH SENNA [DOCUSATE SODIUM;SENNOSIDE B] [Concomitant]
     Indication: CONSTIPATION
     Dosage: 2 DOSAGE FORM, BID
     Route: 048
     Dates: start: 20190507
  10. NITROLINGUAL [Concomitant]
     Active Substance: NITROGLYCERIN
     Indication: ANGINA PECTORIS
     Dosage: UNK
     Route: 060
     Dates: start: 20150720
  11. PULMICORT TURBUHALER [Concomitant]
     Active Substance: BUDESONIDE
     Indication: PRODUCT USED FOR UNKNOWN INDICATION
     Dosage: 1 PUFF TWICE A DAY
  12. MICARDIS PLUS [Concomitant]
     Active Substance: HYDROCHLOROTHIAZIDE\TELMISARTAN
     Indication: HYPERTENSION
     Dosage: 1 DOSAGE FORM, DAILY
     Route: 048
     Dates: start: 20191107
  13. CENOVIS MULTIVITAMIN AND MINERAL [Concomitant]
     Indication: EXERCISE ADEQUATE
     Route: 065
  14. PREVNAR 13 [Concomitant]
     Active Substance: PNEUMOCOCCAL 13-VALENT CONJUGATE VACCINE
     Indication: PRODUCT USED FOR UNKNOWN INDICATION
     Dosage: UNK
     Route: 065
     Dates: start: 20200716
  15. COLCHICINE. [Concomitant]
     Active Substance: COLCHICINE
     Indication: GOUT
     Dosage: 1 TO 2 AS NECESSARY, WHEN GOUT FLARE, MAX 3 DOSES
     Route: 048
     Dates: start: 20200113
  16. ELIQUIS [Suspect]
     Active Substance: APIXABAN
     Indication: CEREBROVASCULAR ACCIDENT PROPHYLAXIS
     Dosage: 5 MILLIGRAM, BID
     Route: 048
     Dates: start: 20171102
  17. THIAMINE. [Concomitant]
     Active Substance: THIAMINE
     Indication: ALCOHOL USE
     Dosage: 1 DOSAGE FORM DAILY
     Route: 048
     Dates: start: 20190507
  18. DUODART [Concomitant]
     Active Substance: DUTASTERIDE\TAMSULOSIN
     Indication: LOWER URINARY TRACT SYMPTOMS
     Dosage: 1 DOSAGE FORM, DAILY
     Route: 048
     Dates: start: 20170217
  19. VENTOLIN [Concomitant]
     Active Substance: ALBUTEROL SULFATE
     Indication: ASTHMA
     Dosage: 100 MCG/DOSE, 2 TO 4 EVERY 4 HOURS UPTO 12 PUFFS
     Dates: start: 20181224
  20. VITAMIN D [COLECALCIFEROL] [Concomitant]
     Active Substance: CHOLECALCIFEROL
     Indication: VITAMIN D DEFICIENCY
     Dosage: 1 DOSAGE FORM DAILY
     Route: 048
     Dates: start: 20190507
  21. PNEUMOVAX 23 [Concomitant]
     Active Substance: PNEUMOCOCCAL VACCINE, POLYVALENT 23
     Indication: PRODUCT USED FOR UNKNOWN INDICATION
     Dosage: UNK
     Route: 065
     Dates: start: 20190621

REACTIONS (13)
  - Headache [Unknown]
  - Oedema peripheral [Unknown]
  - Weight abnormal [Unknown]
  - Alanine aminotransferase increased [Unknown]
  - Eye pain [Unknown]
  - Contusion [Unknown]
  - Visual impairment [Unknown]
  - Rosacea [Unknown]
  - Aspartate aminotransferase increased [Unknown]
  - Periprosthetic fracture [Unknown]
  - Accident [Unknown]
  - Swelling [Unknown]
  - Gout [Unknown]

NARRATIVE: CASE EVENT DATE: 20190225
